FAERS Safety Report 14897515 (Version 1)
Quarter: 2018Q2

REPORT INFORMATION
  Report Type: Spontaneous
  Country: GB (occurrence: GB)
  Receive Date: 20180515
  Receipt Date: 20180515
  Transmission Date: 20180711
  Serious: Yes (Life-Threatening, Hospitalization, Other)
  Sender: FDA-Public Use
  Company Number: GB-PFIZER INC-2018196037

PATIENT
  Age: 23 Year
  Sex: Female
  Weight: 83 kg

DRUGS (3)
  1. CARBOPROST TROMETAMOL [Suspect]
     Active Substance: CARBOPROST TROMETHAMINE
     Indication: POSTPARTUM HAEMORRHAGE
     Dosage: 750 UG, 1X/DAY
     Route: 030
     Dates: start: 20180401
  2. ANAESTHETIC [Concomitant]
     Active Substance: UNSPECIFIED INGREDIENT
     Dosage: UNK
     Route: 037
     Dates: start: 20180401
  3. SYNTOMETRINE /00145001/ [Concomitant]
     Active Substance: ERGONOVINE\OXYTOCIN
     Indication: POSTPARTUM HAEMORRHAGE
     Dosage: 500/5
     Route: 030
     Dates: start: 20180401

REACTIONS (8)
  - Hypertension [Recovered/Resolved]
  - Dizziness [Recovered/Resolved]
  - Diplopia [Recovered/Resolved]
  - Dyspnoea [Recovered/Resolved]
  - Cough [Recovered/Resolved]
  - Rales [Recovered/Resolved]
  - Headache [Recovered/Resolved]
  - Acute pulmonary oedema [Recovered/Resolved]

NARRATIVE: CASE EVENT DATE: 20180401
